FAERS Safety Report 5269032-8 (Version None)
Quarter: 2007Q1

REPORT INFORMATION
  Report Type: 
  Country: None (occurrence: None)
  Receive Date: 20070319
  Receipt Date: 20070307
  Transmission Date: 20070707
  Serious: Yes (Hospitalization, Other)
  Sender: FDA-Public Use
  Company Number: US-JNJFOC-20070107433

PATIENT
  Age: 38 Year
  Sex: Female

DRUGS (12)
  1. PREZISTA [Suspect]
     Indication: HIV INFECTION
     Route: 048
     Dates: start: 20061212, end: 20070105
  2. MK0518 [Concomitant]
     Indication: HIV INFECTION
     Route: 048
     Dates: start: 20061212, end: 20070105
  3. ENFUVIRTIDE [Concomitant]
     Indication: HIV INFECTION
     Route: 065
     Dates: start: 20061212, end: 20061228
  4. RITONAVIR [Concomitant]
     Indication: HIV INFECTION
     Route: 065
  5. ACYCLOVIR [Concomitant]
     Route: 065
  6. ALBUTEROL [Concomitant]
     Route: 065
  7. BENAZEPRIL HCL [Concomitant]
     Route: 065
  8. ESCITALOPRAM OXALATE [Concomitant]
     Route: 065
  9. GABAPENTIN [Concomitant]
     Route: 065
  10. IMIPRAMINE HCL [Concomitant]
     Route: 065
  11. METFORMIN [Concomitant]
     Route: 065
  12. ZOLPIDEM TARTRATE [Concomitant]
     Route: 065

REACTIONS (19)
  - ALANINE AMINOTRANSFERASE INCREASED [None]
  - ANAEMIA [None]
  - ASPARTATE AMINOTRANSFERASE INCREASED [None]
  - BLISTER [None]
  - CHILLS [None]
  - DRUG HYPERSENSITIVITY [None]
  - DYSPNOEA [None]
  - EXFOLIATIVE RASH [None]
  - INFUSION SITE ERYTHEMA [None]
  - INFUSION SITE WARMTH [None]
  - LIVER FUNCTION TEST ABNORMAL [None]
  - NO THERAPEUTIC RESPONSE [None]
  - PERIORBITAL OEDEMA [None]
  - PETECHIAE [None]
  - PYREXIA [None]
  - RASH MACULO-PAPULAR [None]
  - RHINORRHOEA [None]
  - TACHYCARDIA [None]
  - THROMBOCYTOPENIA [None]
